FAERS Safety Report 8625515-1 (Version None)
Quarter: 2012Q3

REPORT INFORMATION
  Report Type: 
  Country: None (occurrence: None)
  Receive Date: 20120827
  Receipt Date: 20120823
  Transmission Date: 20120928
  Serious: Yes (Death)
  Sender: FDA-Public Use
  Company Number: US-ROCHE-1078462

PATIENT
  Sex: Male
  Weight: 67.192 kg

DRUGS (1)
  1. XELODA [Suspect]
     Indication: LUNG CANCER METASTATIC
     Route: 048
     Dates: start: 20120514

REACTIONS (3)
  - HYPERCHLORHYDRIA [None]
  - DEATH [None]
  - INSOMNIA [None]
